FAERS Safety Report 4811068-2 (Version None)
Quarter: 2005Q4

REPORT INFORMATION
  Report Type: 
  Country: None (occurrence: None)
  Receive Date: 20051025
  Receipt Date: 20051010
  Transmission Date: 20060501
  Serious: Yes (Life-Threatening, Hospitalization, Other)
  Sender: FDA-Public Use
  Company Number: 2005-00434

PATIENT
  Age: 54 Year
  Sex: Female

DRUGS (2)
  1. VELCADE [Suspect]
     Indication: WALDENSTROM'S MACROGLOBULINAEMIA
     Dosage: SEE IMAGE
     Route: 042
     Dates: start: 20040312, end: 20040312
  2. VELCADE [Suspect]
     Indication: WALDENSTROM'S MACROGLOBULINAEMIA
     Dosage: SEE IMAGE
     Route: 042
     Dates: start: 20040405, end: 20050819

REACTIONS (11)
  - ARTHRALGIA [None]
  - AXILLARY PAIN [None]
  - CHILLS [None]
  - CONJUNCTIVITIS INFECTIVE [None]
  - CRYOGLOBULINAEMIA [None]
  - MYALGIA [None]
  - PAIN IN EXTREMITY [None]
  - PYREXIA [None]
  - SHOULDER PAIN [None]
  - SKIN LESION [None]
  - VASCULITIS [None]
